FAERS Safety Report 11844574 (Version 1)
Quarter: 2015Q4

REPORT INFORMATION
  Report Type: Spontaneous
  Country: US (occurrence: None)
  Receive Date: 20151216
  Receipt Date: 20151216
  Transmission Date: 20160305
  Serious: Yes (Other)
  Sender: FDA-Public Use
  Company Number: None

PATIENT
  Age: 34 Year
  Sex: Female

DRUGS (1)
  1. INVEGA SUSTENNA [Suspect]
     Active Substance: PALIPERIDONE PALMITATE
     Dosage: 234 MG, Q 4 WEEKS, IM
     Route: 030
     Dates: start: 20150420

REACTIONS (3)
  - Blood prolactin increased [None]
  - Lactation disorder [None]
  - Amenorrhoea [None]

NARRATIVE: CASE EVENT DATE: 20150615
